FAERS Safety Report 6580485-5 (Version None)
Quarter: 2010Q1

REPORT INFORMATION
  Report Type: 
  Country: None (occurrence: None)
  Receive Date: 20100212
  Receipt Date: 20100203
  Transmission Date: 20100710
  Serious: Yes (Death)
  Sender: FDA-Public Use
  Company Number: GB-ABBOTT-09P-167-0612017-00

PATIENT
  Sex: Female
  Weight: 74 kg

DRUGS (25)
  1. HUMIRA [Suspect]
     Indication: RHEUMATOID ARTHRITIS
     Route: 058
     Dates: start: 20091020, end: 20091103
  2. PREDNISOLONE [Concomitant]
     Indication: DRUG USE FOR UNKNOWN INDICATION
     Dates: start: 20031222
  3. PREDNISOLONE [Concomitant]
     Dates: start: 20091110
  4. PARACETAMOL [Concomitant]
     Indication: DRUG USE FOR UNKNOWN INDICATION
     Dates: start: 20031222
  5. PARACETAMOL [Concomitant]
     Dates: start: 20091110
  6. TRAMADOL [Concomitant]
     Indication: DRUG USE FOR UNKNOWN INDICATION
     Dates: start: 20031222
  7. VENTOLIN [Concomitant]
     Indication: DRUG USE FOR UNKNOWN INDICATION
     Dates: start: 20031222
  8. WARFARIN SODIUM [Concomitant]
     Indication: DRUG USE FOR UNKNOWN INDICATION
     Dates: start: 20031222
  9. METHOTREXATE [Concomitant]
     Indication: DRUG USE FOR UNKNOWN INDICATION
     Dates: start: 20091023, end: 20091106
  10. METHOTREXATE [Concomitant]
     Dates: start: 20091110
  11. MORPHINE [Concomitant]
     Indication: DRUG USE FOR UNKNOWN INDICATION
     Dosage: 10 MG/AMP VIA SYRINGE DRIVER 2*5 AMPOULE
     Dates: start: 20091109
  12. MIDAZOLAM HCL [Concomitant]
     Indication: DRUG USE FOR UNKNOWN INDICATION
     Dosage: 10 MG/2 ML AMPOULE VIA SYNRINGE DRIVER 10 AMPOULE
     Dates: start: 20091109
  13. METOCLOPRAMIDE HYDROCHLORDIE [Concomitant]
     Indication: NAUSEA
     Dosage: 10 MG/2 ML AMPOULE TDS PRN 10 AMPOULE
     Dates: start: 20091109
  14. METOCLOPRAMIDE HYDROCHLORDIE [Concomitant]
     Indication: VOMITING
  15. HYOSCINE HBR HYT [Concomitant]
     Indication: DRUG USE FOR UNKNOWN INDICATION
     Dosage: SOLUTION FOR INJECTION 400 MICROGRAMS/1 ML AMPOULE VIA SYRINGE DRIVER 10 AMPOULE
     Dates: start: 20091110
  16. GABAPENTIN [Concomitant]
     Indication: DRUG USE FOR UNKNOWN INDICATION
     Dates: start: 20091110
  17. ALBUTEROL [Concomitant]
     Indication: DRUG USE FOR UNKNOWN INDICATION
     Dosage: CFC-FREE INHALER 100 MICROGRAMS/PUFF AS DIR 2*1 INHALER(S)
     Dates: start: 20091110
  18. MORPHINE SULFATE [Concomitant]
     Indication: DRUG USE FOR UNKNOWN INDICATION
     Dosage: 10 MG/5 ML 5 MLS QQH PRN 300 ML(S)
     Route: 048
     Dates: start: 20091110
  19. LACTULOSE [Concomitant]
     Indication: DRUG USE FOR UNKNOWN INDICATION
     Route: 048
     Dates: start: 20090819
  20. CALCICHEW D3 FORTE [Concomitant]
     Indication: DRUG USE FOR UNKNOWN INDICATION
     Dosage: 2 ON 14 TABLET(S)
     Dates: start: 20091110
  21. FORTISIP [Concomitant]
     Indication: DRUG USE FOR UNKNOWN INDICATION
     Dates: start: 20091013
  22. FORTISIP [Concomitant]
     Dosage: LIQUID FEED (TROPICAL FRUIT) BOTTLE 200 ML AS DIRECTED 56*1 BOTTLE
     Dates: start: 20090807
  23. QVAR 40 [Concomitant]
     Indication: DRUG USE FOR UNKNOWN INDICATION
     Dosage: CFC-FREE INHALER 100 MICROGRAMS/DOSE BD 1 INHALER
     Dates: start: 20091015
  24. FUROSEMIDE [Concomitant]
     Indication: DRUG USE FOR UNKNOWN INDICATION
     Dates: start: 20091015
  25. FOLIC ACID [Concomitant]
     Indication: DRUG USE FOR UNKNOWN INDICATION
     Dates: start: 20091110

REACTIONS (15)
  - ASTHENIA [None]
  - CHRONIC OBSTRUCTIVE PULMONARY DISEASE [None]
  - EAR PAIN [None]
  - EMOTIONAL DISTRESS [None]
  - HYPOACUSIS [None]
  - HYPOPHAGIA [None]
  - HYPOTENSION [None]
  - MALAISE [None]
  - NASOPHARYNGITIS [None]
  - PAIN [None]
  - RALES [None]
  - RHEUMATOID ARTHRITIS [None]
  - SEPSIS [None]
  - URINARY TRACT INFECTION [None]
  - WHITE BLOOD CELL COUNT INCREASED [None]
